FAERS Safety Report 5291075-9 (Version None)
Quarter: 2007Q2

REPORT INFORMATION
  Report Type: 
  Country: None (occurrence: None)
  Receive Date: 20070409
  Receipt Date: 20070326
  Transmission Date: 20071010
  Serious: Yes (Death, Hospitalization)
  Sender: FDA-Public Use
  Company Number: JP-JNJFOC-20070306665

PATIENT
  Sex: Female
  Weight: 65 kg

DRUGS (15)
  1. REMICADE [Suspect]
  2. REMICADE [Suspect]
     Dosage: 8 INFUSIONS ON UNSPECIFIED DATES
  3. REMICADE [Suspect]
  4. REMICADE [Suspect]
  5. REMICADE [Suspect]
     Indication: RHEUMATOID ARTHRITIS
  6. RHEUMATREX [Suspect]
     Route: 048
  7. RHEUMATREX [Suspect]
     Route: 048
  8. RHEUMATREX [Suspect]
     Indication: RHEUMATOID ARTHRITIS
     Route: 048
  9. ADRENAL HORMONE PREPARATION [Concomitant]
     Indication: RHEUMATOID ARTHRITIS
  10. PREDONINE [Concomitant]
     Indication: RHEUMATOID ARTHRITIS
     Route: 048
  11. INFREE [Concomitant]
     Indication: RHEUMATOID ARTHRITIS
     Route: 048
  12. FOLIAMIN [Concomitant]
     Route: 048
  13. SELBEX [Concomitant]
     Route: 048
  14. ALESION [Concomitant]
     Route: 048
  15. AMOBAN [Concomitant]
     Route: 048

REACTIONS (2)
  - MALAISE [None]
  - PYREXIA [None]
